FAERS Safety Report 8447394-8 (Version None)
Quarter: 2012Q2

REPORT INFORMATION
  Report Type: 
  Country: None (occurrence: None)
  Receive Date: 20120619
  Receipt Date: 20120607
  Transmission Date: 20120825
  Serious: Yes (Death, Other)
  Sender: FDA-Public Use
  Company Number: JP-PFIZER INC-2012055229

PATIENT
  Age: 56 Year
  Sex: Female
  Weight: 43 kg

DRUGS (26)
  1. IRINOTECAN HCL [Suspect]
     Indication: CERVIX CARCINOMA
     Dosage: 92.2 MG/BODY, 1X/DAY
     Route: 041
     Dates: start: 20120209, end: 20120209
  2. FLUMARIN [Concomitant]
     Dosage: UNK
     Dates: start: 20120215, end: 20120216
  3. NEUTROGIN [Concomitant]
     Dosage: UNK
     Dates: start: 20120217, end: 20120218
  4. SOLACET F [Concomitant]
     Dosage: UNK
     Dates: start: 20120218, end: 20120219
  5. CEFEPIME HYDROCHLORIDE [Concomitant]
     Dosage: UNK
     Dates: start: 20120217, end: 20120219
  6. DOPAMINE HYDROCHLORIDE [Concomitant]
     Dosage: UNK
     Dates: start: 20120216, end: 20120219
  7. RED CELLS MAP [Concomitant]
     Dosage: UNK
     Dates: start: 20120218, end: 20120218
  8. ETOPOSIDE [Concomitant]
     Indication: CERVIX CARCINOMA
     Dosage: 50 MG/BODY
     Route: 048
     Dates: start: 20120209, end: 20120215
  9. LASIX [Concomitant]
     Dosage: UNK
     Dates: start: 20120216, end: 20120218
  10. PRIMPERAN TAB [Concomitant]
     Dosage: UNK
     Dates: start: 20120217, end: 20120217
  11. ALBUMINAR [Concomitant]
     Dosage: UNK
     Dates: start: 20120217, end: 20120217
  12. NEUART [Concomitant]
     Dosage: UNK
     Dates: start: 20120218, end: 20120218
  13. DIAZEPAM [Concomitant]
     Dosage: UNK
     Dates: start: 20120218, end: 20120218
  14. SODIUM BICARBONATE [Concomitant]
     Dosage: UNK
     Dates: start: 20120218, end: 20120218
  15. OMEPRAZOLE [Concomitant]
     Dosage: UNK
     Dates: start: 20120219, end: 20120219
  16. GRAN [Concomitant]
     Dosage: UNK
     Dates: start: 20120215, end: 20120216
  17. NEOPHAGEN [Concomitant]
     Dosage: UNK
     Dates: start: 20120217, end: 20120217
  18. PLATELETS [Concomitant]
     Dosage: UNK
     Dates: start: 20120217, end: 20120218
  19. HUMAN PLASMA PROTEIN FRACTION [Concomitant]
     Dosage: UNK
     Dates: start: 20120217
  20. REMINARON [Concomitant]
     Dosage: UNK
     Dates: start: 20120218, end: 20120218
  21. SOLACET D [Concomitant]
     Dosage: UNK
     Dates: start: 20120215, end: 20120219
  22. MIDAZOLAM HCL [Concomitant]
     Dosage: UNK
     Dates: start: 20120218, end: 20120218
  23. ALOXI [Concomitant]
     Dosage: UNK
     Dates: start: 20120209, end: 20120209
  24. DOBUTAMINE HYDROCHLORIDE [Concomitant]
     Dosage: UNK
     Dates: start: 20120217, end: 20120218
  25. FRESH FROZEN PLASMA [Concomitant]
     Dosage: UNK
     Dates: start: 20120217, end: 20120218
  26. HEPARIN SODIUM [Concomitant]
     Dosage: UNK
     Dates: start: 20120218, end: 20120218

REACTIONS (5)
  - DECREASED APPETITE [None]
  - LEUKOPENIA [None]
  - FEBRILE NEUTROPENIA [None]
  - DISSEMINATED INTRAVASCULAR COAGULATION [None]
  - DIARRHOEA [None]
